FAERS Safety Report 11728897 (Version 1)
Quarter: 2015Q4

REPORT INFORMATION
  Report Type: Report from Study
  Country: US (occurrence: US)
  Receive Date: 20151112
  Receipt Date: 20151112
  Transmission Date: 20160304
  Serious: Yes (Hospitalization)
  Sender: FDA-Public Use
  Company Number: US-GILEAD-2015-0179980

PATIENT
  Age: 69 Year
  Sex: Male
  Weight: 75.39 kg

DRUGS (15)
  1. OXYCODONE [Suspect]
     Active Substance: OXYCODONE
     Indication: POST HERPETIC NEURALGIA
     Dosage: UNK
     Route: 065
  2. SPIRONOLACTONE. [Concomitant]
     Active Substance: SPIRONOLACTONE
  3. XIFAXAN [Concomitant]
     Active Substance: RIFAXIMIN
  4. CORTISPORIN                        /00271401/ [Concomitant]
  5. LACTULOSE. [Concomitant]
     Active Substance: LACTULOSE
  6. LEDIPASVIR/SOFOSBUVIR [Suspect]
     Active Substance: LEDIPASVIR\SOFOSBUVIR
     Indication: HEPATITIS C
     Dosage: 1 DF, QD
     Route: 048
     Dates: start: 20150319, end: 20150428
  7. LASIX [Concomitant]
     Active Substance: FUROSEMIDE
  8. PROBIOTIC                          /07343501/ [Concomitant]
  9. NADOLOL. [Concomitant]
     Active Substance: NADOLOL
  10. RIBAVIRIN. [Suspect]
     Active Substance: RIBAVIRIN
     Indication: HEPATITIS C
     Dosage: 1000 MG, QD
     Route: 048
     Dates: start: 20150319, end: 20150417
  11. LEVAQUIN [Concomitant]
     Active Substance: LEVOFLOXACIN
  12. FLONASE                            /00908302/ [Concomitant]
     Active Substance: MOMETASONE FUROATE
  13. CIPROFLOXACIN. [Concomitant]
     Active Substance: CIPROFLOXACIN
  14. OFLOXACIN. [Concomitant]
     Active Substance: OFLOXACIN
  15. ZYRTEC [Concomitant]
     Active Substance: CETIRIZINE HYDROCHLORIDE

REACTIONS (1)
  - Mental status changes [Unknown]

NARRATIVE: CASE EVENT DATE: 20150502
